FAERS Safety Report 11047221 (Version 1)
Quarter: 2015Q2

REPORT INFORMATION
  Report Type: Spontaneous
  Country: BA (occurrence: None)
  Receive Date: 20150416
  Receipt Date: 20150416
  Transmission Date: 20150821
  Serious: Yes (Other)
  Sender: FDA-Public Use
  Company Number: 2572813

PATIENT
  Age: 48 Year

DRUGS (1)
  1. DOCETAXEL. [Suspect]
     Active Substance: DOCETAXEL
     Indication: LUNG NEOPLASM MALIGNANT
     Route: 042
     Dates: start: 20140703, end: 20140703

REACTIONS (2)
  - Erythema [None]
  - Choking [None]

NARRATIVE: CASE EVENT DATE: 20140703
